FAERS Safety Report 25192444 (Version 5)
Quarter: 2025Q3

REPORT INFORMATION
  Report Type: Spontaneous
  Country: US (occurrence: US)
  Receive Date: 20250414
  Receipt Date: 20250715
  Transmission Date: 20251020
  Serious: No
  Sender: NOVARTIS
  Company Number: US-002147023-NVSC2025US060440

PATIENT
  Age: 25 Year
  Sex: Female
  Weight: 60.3 kg

DRUGS (3)
  1. COSENTYX [Suspect]
     Active Substance: SECUKINUMAB
     Indication: Hidradenitis
     Dosage: 300 MG, QW (INJECTION)
     Route: 041
  2. COSENTYX [Suspect]
     Active Substance: SECUKINUMAB
     Route: 065
  3. COSENTYX [Suspect]
     Active Substance: SECUKINUMAB
     Dosage: 300 MG, QW
     Route: 058

REACTIONS (5)
  - Pruritus [Unknown]
  - Device leakage [Unknown]
  - Injection site reaction [Unknown]
  - Injection site induration [Unknown]
  - Skin injury [Unknown]

NARRATIVE: CASE EVENT DATE: 20250613
